FAERS Safety Report 4364298-0 (Version None)
Quarter: 2004Q2

REPORT INFORMATION
  Report Type: 
  Country: None (occurrence: None)
  Receive Date: 20040525
  Receipt Date: 20040514
  Transmission Date: 20050107
  Serious: Yes (Hospitalization, Other)
  Sender: FDA-Public Use
  Company Number: PHEH2004US05383

PATIENT
  Age: 78 Year
  Sex: Female
  Weight: 75 kg

DRUGS (10)
  1. LAMISIL [Suspect]
     Indication: NAIL TINEA
     Route: 048
     Dates: start: 19990901
  2. PEPCID [Concomitant]
  3. TOPROL-XL [Concomitant]
  4. NIFEREX [Concomitant]
  5. ARTHROTEC [Concomitant]
  6. PREMARIN [Concomitant]
  7. LASIX [Concomitant]
  8. DETROL [Concomitant]
  9. DILACOR XR [Concomitant]
  10. IMIPRAMINE [Concomitant]

REACTIONS (10)
  - ABDOMINAL PAIN [None]
  - ALANINE AMINOTRANSFERASE INCREASED [None]
  - ASPARTATE AMINOTRANSFERASE INCREASED [None]
  - BILIARY CIRRHOSIS PRIMARY [None]
  - CHOLECYSTECTOMY [None]
  - CHOLELITHIASIS [None]
  - HEPATIC ENZYME INCREASED [None]
  - HEPATITIS A POSITIVE [None]
  - MENTAL STATUS CHANGES [None]
  - TRANSIENT ISCHAEMIC ATTACK [None]
